FAERS Safety Report 5621107-7 (Version None)
Quarter: 2008Q1

REPORT INFORMATION
  Report Type: 
  Country: None (occurrence: None)
  Receive Date: 20080114
  Receipt Date: 20070122
  Transmission Date: 20080703
  Serious: Yes (Other)
  Sender: FDA-Public Use
  Company Number: A03200700584

PATIENT
  Sex: Male

DRUGS (4)
  1. PLAVIX [Suspect]
     Indication: STENT PLACEMENT
     Dosage: 75 MG QD - ORAL
     Route: 048
     Dates: start: 20070117, end: 20070118
  2. PLAVIX [Suspect]
     Indication: STENT PLACEMENT
     Dosage: 150 MG QD - ORAL
     Route: 048
     Dates: start: 20070118
  3. ACETYLSALICYLC ACID [Concomitant]
  4. FUROSEMIDE [Concomitant]

REACTIONS (2)
  - OVERDOSE [None]
  - STENT OCCLUSION [None]
